FAERS Safety Report 16842500 (Version 1)
Quarter: 2019Q3

REPORT INFORMATION
  Report Type: Spontaneous
  Country: FR (occurrence: FR)
  Receive Date: 20190924
  Receipt Date: 20190924
  Transmission Date: 20191005
  Serious: Yes (Life-Threatening)
  Sender: FDA-Public Use
  Company Number: FR-SUN PHARMACEUTICAL INDUSTRIES LTD-2019RR-221657

PATIENT
  Age: 84 Year
  Sex: Female
  Weight: 49 kg

DRUGS (3)
  1. ELIQUIS [Suspect]
     Active Substance: APIXABAN
     Indication: ARRHYTHMIA SUPRAVENTRICULAR
     Dosage: 5 MILLIGRAM, QD
     Route: 048
     Dates: start: 2018, end: 20190410
  2. ACICLOVIR [Concomitant]
     Active Substance: ACYCLOVIR
     Indication: PRODUCT USED FOR UNKNOWN INDICATION
     Dosage: UNK
     Route: 065
     Dates: start: 201903, end: 20190410
  3. FLECAINIDE [Suspect]
     Active Substance: FLECAINIDE
     Indication: ARRHYTHMIA SUPRAVENTRICULAR
     Dosage: 150 KILO-INTERNATIONAL UNIT, QD
     Route: 048

REACTIONS (2)
  - Acute respiratory distress syndrome [Recovered/Resolved]
  - Interstitial lung disease [Recovering/Resolving]

NARRATIVE: CASE EVENT DATE: 201904
